FAERS Safety Report 8999139 (Version 1)
Quarter: 2013Q1

REPORT INFORMATION
  Report Type: Spontaneous
  Country: SE (occurrence: SE)
  Receive Date: 20130103
  Receipt Date: 20130103
  Transmission Date: 20140127
  Serious: Yes (Hospitalization, Other)
  Sender: FDA-Public Use
  Company Number: SE-JNJFOC-20130100565

PATIENT
  Age: 63 Year
  Sex: Male

DRUGS (5)
  1. XARELTO [Suspect]
     Indication: THROMBOSIS PROPHYLAXIS
     Route: 048
     Dates: start: 20121217, end: 20121217
  2. XARELTO [Suspect]
     Indication: KNEE ARTHROPLASTY
     Route: 048
     Dates: start: 20121217, end: 20121217
  3. DICLOFENAC [Concomitant]
     Route: 065
  4. PARACETAMOL [Concomitant]
     Route: 065
  5. CITODON [Concomitant]
     Route: 065

REACTIONS (3)
  - Pulmonary embolism [Unknown]
  - Syncope [Unknown]
  - Drug ineffective [Unknown]
